FAERS Safety Report 6369824-8 (Version None)
Quarter: 2009Q3

REPORT INFORMATION
  Report Type: 
  Country: None (occurrence: None)
  Receive Date: 20090923
  Receipt Date: 20090921
  Transmission Date: 20100115
  Serious: Yes (Hospitalization)
  Sender: FDA-Public Use
  Company Number: US-TEVA-209884USA

PATIENT
  Age: 69 Year
  Sex: Female

DRUGS (7)
  1. FLECAINIDE ACETATE TABLET 50MG,100MG,150MG [Suspect]
     Indication: ATRIAL FIBRILLATION
  2. FLECAINIDE ACETATE TABLET 50MG,100MG,150MG [Concomitant]
  3. PAROXETINE HCL [Interacting]
     Indication: MAJOR DEPRESSION
  4. WARFARIN SODIUM [Concomitant]
  5. CARVEDILOL [Concomitant]
  6. LEVOTHYROXINE SODIUM [Concomitant]
  7. PANTOPRAZOLE SODIUM [Concomitant]

REACTIONS (2)
  - DELIRIUM [None]
  - DRUG INTERACTION [None]
